FAERS Safety Report 11239465 (Version 1)
Quarter: 2015Q3

REPORT INFORMATION
  Report Type: Spontaneous
  Country: US (occurrence: US)
  Receive Date: 20150706
  Receipt Date: 20150706
  Transmission Date: 20151125
  Serious: Yes (Hospitalization)
  Sender: FDA-Public Use
  Company Number: US-MERCK-1506USA006282

PATIENT
  Age: 66 Year
  Sex: Male
  Weight: 147.5 kg

DRUGS (18)
  1. CARVEDILOL. [Concomitant]
     Active Substance: CARVEDILOL
  2. POTASSIUM CHLORIDE. [Concomitant]
     Active Substance: POTASSIUM CHLORIDE
  3. HYDROCODONE [Concomitant]
     Active Substance: HYDROCODONE
  4. INSULIN GLARGINE [Concomitant]
     Active Substance: INSULIN GLARGINE
  5. ENOXAPARIN SODIUM. [Concomitant]
     Active Substance: ENOXAPARIN SODIUM
     Dosage: UNK
     Dates: start: 20100122, end: 20100201
  6. LEVOFLOXACIN. [Concomitant]
     Active Substance: LEVOFLOXACIN
  7. FERROUS SULFATE [Concomitant]
     Active Substance: FERROUS SULFATE\FERROUS SULFATE, DRIED
  8. LISINOPRIL. [Concomitant]
     Active Substance: LISINOPRIL
  9. ISOSORBIDE MONONITRATE. [Concomitant]
     Active Substance: ISOSORBIDE MONONITRATE
  10. DAPTOMYCIN. [Suspect]
     Active Substance: DAPTOMYCIN
     Dosage: 6 MG/KG, Q24H
     Route: 042
     Dates: start: 20100122, end: 20100201
  11. TRAMADOL HYDROCHLORIDE. [Concomitant]
     Active Substance: TRAMADOL HYDROCHLORIDE
  12. WARFARIN [Concomitant]
     Active Substance: WARFARIN
  13. ASCORBIC ACID. [Concomitant]
     Active Substance: ASCORBIC ACID
  14. DAPTOMYCIN. [Suspect]
     Active Substance: DAPTOMYCIN
     Indication: SEPSIS
     Dosage: 919.8 MG, Q24H
     Route: 042
     Dates: start: 20100122, end: 20100201
  15. ESOMEPRAZOLE [Concomitant]
     Active Substance: ESOMEPRAZOLE
  16. FUROSEMIDE. [Concomitant]
     Active Substance: FUROSEMIDE
  17. SIMVASTATIN. [Concomitant]
     Active Substance: SIMVASTATIN
  18. CLOTRIMAZOLE. [Concomitant]
     Active Substance: CLOTRIMAZOLE

REACTIONS (3)
  - Eosinophilic pneumonia [Unknown]
  - Drug hypersensitivity [Unknown]
  - Haemoptysis [Unknown]

NARRATIVE: CASE EVENT DATE: 201001
